FAERS Safety Report 13326223 (Version 2)
Quarter: 2017Q3

REPORT INFORMATION
  Report Type: Report from Study
  Country: US (occurrence: US)
  Receive Date: 20170311
  Receipt Date: 20170712
  Transmission Date: 20171127
  Serious: No
  Sender: FDA-Public Use
  Company Number: PHEH2017US007221

PATIENT
  Age: 41 Year
  Sex: Male

DRUGS (1)
  1. COSENTYX [Suspect]
     Active Substance: SECUKINUMAB
     Indication: PSORIASIS
     Dosage: 300 MG, QMO
     Route: 058
     Dates: start: 20170224

REACTIONS (3)
  - Incorrect dose administered [Unknown]
  - Pruritus [Recovering/Resolving]
  - Swelling [Unknown]

NARRATIVE: CASE EVENT DATE: 20170224
